FAERS Safety Report 4556162-9 (Version None)
Quarter: 2005Q1

REPORT INFORMATION
  Report Type: 
  Country: None (occurrence: None)
  Receive Date: 20050119
  Receipt Date: 20050111
  Transmission Date: 20050727
  Serious: Yes (Other)
  Sender: FDA-Public Use
  Company Number: GB-ABBOTT-05P-167-0286186-00

PATIENT
  Sex: Male

DRUGS (3)
  1. VALPROATE SODIUM [Suspect]
     Indication: EPILEPSY
     Route: 048
     Dates: start: 19980101
  2. VALPROATE SODIUM [Suspect]
     Indication: ATTENTION DEFICIT/HYPERACTIVITY DISORDER
  3. STRATTERA [Interacting]
     Indication: ATTENTION DEFICIT/HYPERACTIVITY DISORDER
     Route: 048
     Dates: start: 20040901

REACTIONS (5)
  - DRUG INTERACTION [None]
  - LYMPHOPENIA [None]
  - NEUTROPENIA [None]
  - THROMBOCYTOPENIA [None]
  - WEIGHT DECREASED [None]
